FAERS Safety Report 16307741 (Version 2)
Quarter: 2019Q2

REPORT INFORMATION
  Report Type: Spontaneous
  Country: DE (occurrence: DE)
  Receive Date: 20190514
  Receipt Date: 20190517
  Transmission Date: 20190711
  Serious: Yes (Other)
  Sender: FDA-Public Use
  Company Number: DE-ABBVIE-19K-062-2780578-00

PATIENT
  Age: 78 Year
  Sex: Female
  Weight: 72 kg

DRUGS (3)
  1. VENCLYXTO [Suspect]
     Active Substance: VENETOCLAX
     Route: 048
  2. VENCLYXTO [Suspect]
     Active Substance: VENETOCLAX
     Indication: CHRONIC LYMPHOCYTIC LEUKAEMIA
     Dosage: INCREASING DOSE
     Route: 048
     Dates: start: 20181201
  3. VENCLYXTO [Suspect]
     Active Substance: VENETOCLAX
     Route: 048

REACTIONS (7)
  - Squamous cell carcinoma of skin [Not Recovered/Not Resolved]
  - Insomnia [Recovering/Resolving]
  - Decreased appetite [Recovered/Resolved]
  - Myalgia [Recovering/Resolving]
  - Diarrhoea [Recovered/Resolved]
  - White blood cell count increased [Unknown]
  - Asthenia [Recovered/Resolved]

NARRATIVE: CASE EVENT DATE: 201812
